FAERS Safety Report 5581714-7 (Version None)
Quarter: 2008Q1

REPORT INFORMATION
  Report Type: 
  Country: None (occurrence: None)
  Receive Date: 20080104
  Receipt Date: 20071226
  Transmission Date: 20080703
  Serious: Yes (Other)
  Sender: FDA-Public Use
  Company Number: US-JNJFOC-20070701804

PATIENT
  Sex: Female
  Weight: 48.54 kg

DRUGS (16)
  1. DURAGESIC-100 [Suspect]
     Route: 062
  2. DURAGESIC-100 [Suspect]
     Route: 062
  3. DURAGESIC-100 [Suspect]
     Route: 062
  4. DURAGESIC-100 [Suspect]
     Route: 062
  5. DURAGESIC-100 [Suspect]
     Route: 062
  6. DURAGESIC-100 [Suspect]
     Route: 062
  7. DURAGESIC-100 [Suspect]
     Indication: PAIN
     Dosage: 2X100UG/HR PATCHES
     Route: 062
  8. NORVASC [Concomitant]
     Indication: BLOOD PRESSURE
     Route: 048
  9. PREMARIN [Concomitant]
     Route: 048
  10. NEXIUM [Concomitant]
     Indication: GASTROINTESTINAL DISORDER
     Route: 048
  11. CLONIDINE [Concomitant]
     Indication: BLOOD PRESSURE
     Route: 048
  12. AVAPRO [Concomitant]
     Indication: BLOOD PRESSURE
     Route: 048
  13. MEDROXYPROGESTERONE [Concomitant]
     Route: 065
  14. ZYRTEC [Concomitant]
     Route: 065
  15. LOMOTIL [Concomitant]
     Route: 065
  16. PROMETHAZINE [Concomitant]
     Route: 065

REACTIONS (10)
  - APPLICATION SITE ULCER [None]
  - CHEST DISCOMFORT [None]
  - DYSPNOEA [None]
  - MALAISE [None]
  - MULTIPLE SCLEROSIS [None]
  - PAIN [None]
  - PRURITUS [None]
  - RASH [None]
  - TREATMENT NONCOMPLIANCE [None]
  - WITHDRAWAL SYNDROME [None]
